FAERS Safety Report 6379789-0 (Version None)
Quarter: 2009Q3

REPORT INFORMATION
  Report Type: 
  Country: None (occurrence: None)
  Receive Date: 20090928
  Receipt Date: 20090928
  Transmission Date: 20100115
  Serious: Yes (Hospitalization)
  Sender: FDA-Public Use
  Company Number: US-ROXANE LABORATORIES, INC.-2009-RO-00715RO

PATIENT
  Sex: Female

DRUGS (2)
  1. PROPRANOLOL [Suspect]
     Indication: HAEMANGIOMA
     Dosage: 2.5 MG
     Route: 048
     Dates: start: 20090327, end: 20090716
  2. PROPRANOLOL [Suspect]
     Indication: OFF LABEL USE

REACTIONS (4)
  - CONVULSION [None]
  - HYPOGLYCAEMIA [None]
  - HYPOTHERMIA [None]
  - UNRESPONSIVE TO STIMULI [None]
